FAERS Safety Report 8274977-0 (Version None)
Quarter: 2012Q2

REPORT INFORMATION
  Report Type: 
  Country: None (occurrence: None)
  Receive Date: 20120411
  Receipt Date: 20120402
  Transmission Date: 20120825
  Serious: Yes (Other)
  Sender: FDA-Public Use
  Company Number: US-ASTRAZENECA-2009SE33162

PATIENT
  Age: 64 Year
  Sex: Female
  Weight: 106.1 kg

DRUGS (21)
  1. SYMBICORT [Suspect]
     Dosage: AT NIGHT
     Route: 055
  2. METFORMIN HCL [Concomitant]
  3. NEXIUM [Suspect]
     Indication: GASTROOESOPHAGEAL REFLUX DISEASE
     Route: 048
     Dates: start: 20010101
  4. ELAVIL [Concomitant]
     Route: 048
  5. ZYRTEC (GENERIC) [Concomitant]
  6. OMNARIS [Concomitant]
  7. LISINOPRIL AND HYDROCHLOROTHIAZIDE [Concomitant]
     Indication: HYPERTENSION
     Dosage: 10/12.5 MG DAILY
     Route: 048
  8. ACIDOPHILOUS [Concomitant]
     Dosage: BID
  9. SYMBICORT [Suspect]
     Indication: ASTHMA
     Dosage: 80/4.5 MCG BID
     Route: 055
     Dates: start: 20091204, end: 20091221
  10. SYMBICORT [Suspect]
     Dosage: 160/4.5 MCG BID
     Route: 055
     Dates: start: 20100701
  11. NEXIUM [Suspect]
     Route: 048
  12. PREDNISONE [Concomitant]
  13. PRILOSEC OTC [Suspect]
     Route: 048
  14. CRESTOR [Suspect]
     Route: 048
     Dates: start: 20091201
  15. VENTOLIN [Concomitant]
  16. ATENOLOL [Concomitant]
     Indication: HYPERTENSION
     Route: 048
  17. ASPIRIN [Concomitant]
     Route: 048
  18. CRESTOR [Suspect]
     Route: 048
     Dates: start: 20100201
  19. XYZAL [Concomitant]
  20. XANAX [Concomitant]
     Route: 048
  21. XANAX [Concomitant]
     Route: 048

REACTIONS (18)
  - ANAEMIA [None]
  - HAEMATURIA [None]
  - DIABETES MELLITUS [None]
  - LACRIMATION INCREASED [None]
  - INSOMNIA [None]
  - DYSPHONIA [None]
  - DRUG EFFECT DECREASED [None]
  - EMBOLIC STROKE [None]
  - DYSPNOEA [None]
  - BLOOD GLUCOSE DECREASED [None]
  - ROTATOR CUFF SYNDROME [None]
  - DYSURIA [None]
  - FLATULENCE [None]
  - INTENTIONAL DRUG MISUSE [None]
  - DIPLOPIA [None]
  - GASTROOESOPHAGEAL REFLUX DISEASE [None]
  - HEADACHE [None]
  - ERUCTATION [None]
